FAERS Safety Report 5271797-6 (Version None)
Quarter: 2007Q1

REPORT INFORMATION
  Report Type: 
  Country: None (occurrence: None)
  Receive Date: 20070316
  Receipt Date: 20070307
  Transmission Date: 20070707
  Serious: Yes (Other)
  Sender: FDA-Public Use
  Company Number: 2007SP004446

PATIENT
  Age: 63 Year
  Sex: Female

DRUGS (4)
  1. DIPROFOS (BETAMETHASONE SODIUM PHOSPHATE/DIPROPIONATE) (BETAMETHASONE [Suspect]
     Indication: MYALGIA
     Dosage: 2 ML; ONCE; IM
     Route: 030
     Dates: start: 20070116, end: 20070116
  2. VALSARTAN AND HYDROCHLOROTHIAZIDE [Concomitant]
  3. VIARTRIL [Concomitant]
  4. OMEPRAZOLE [Concomitant]

REACTIONS (1)
  - FACE OEDEMA [None]
